FAERS Safety Report 9613232 (Version 2)
Quarter: 2013Q4

REPORT INFORMATION
  Report Type: Spontaneous
  Country: JP (occurrence: JP)
  Receive Date: 20131010
  Receipt Date: 20131010
  Transmission Date: 20140711
  Serious: Yes (Hospitalization)
  Sender: FDA-Public Use
  Company Number: JP-GLAXOSMITHKLINE-B0328644A

PATIENT
  Age: 62 Year
  Sex: Female
  Weight: 43 kg

DRUGS (8)
  1. VALTREX [Suspect]
     Indication: HERPES ZOSTER
     Dosage: 1000MG TWICE PER DAY
     Route: 048
     Dates: start: 20040315, end: 20040318
  2. ARASENA-A [Concomitant]
     Indication: HERPES ZOSTER
     Route: 061
     Dates: start: 20040313, end: 20040322
  3. KALIMATE [Concomitant]
     Indication: HYPERKALAEMIA
     Dosage: 5.4G PER DAY
     Route: 048
  4. DIGITOXIN [Concomitant]
     Indication: ATRIAL FIBRILLATION
     Dosage: .05MG PER DAY
     Route: 048
  5. ZADITEN [Concomitant]
     Indication: PRURITUS
     Dosage: 1MG TWICE PER DAY
     Route: 048
  6. PANALDINE [Concomitant]
     Indication: PERIPHERAL ARTERIAL OCCLUSIVE DISEASE
     Dosage: 100MG TWO TIMES PER WEEK
     Route: 048
  7. CALTAN [Concomitant]
     Indication: HYPERPHOSPHATAEMIA
     Dosage: 500MG TWICE PER DAY
     Route: 048
  8. ACINON [Concomitant]
     Indication: GASTRITIS EROSIVE
     Dosage: 150MG TWICE PER DAY
     Route: 048

REACTIONS (11)
  - Nervous system disorder [Recovered/Resolved]
  - Altered state of consciousness [Unknown]
  - Depressed level of consciousness [Recovered/Resolved]
  - Stupor [Unknown]
  - Somnolence [Unknown]
  - Disorientation [Unknown]
  - Malaise [Unknown]
  - Decreased appetite [Unknown]
  - Asthenia [Unknown]
  - Speech disorder [Unknown]
  - Overdose [Unknown]
